FAERS Safety Report 7005223-3 (Version None)
Quarter: 2010Q3

REPORT INFORMATION
  Report Type: 
  Country: None (occurrence: None)
  Receive Date: 20100917
  Receipt Date: 20100909
  Transmission Date: 20110219
  Serious: Yes (Life-Threatening)
  Sender: FDA-Public Use
  Company Number: 693606

PATIENT
  Age: 73 Year
  Sex: Female

DRUGS (8)
  1. VANCOMYCIN HYDROCHLORIDE [Suspect]
     Indication: PRODUCT USED FOR UNKNOWN INDICATION
     Dosage: 2 G GRAMS(S), INTRAVENOUS
     Route: 042
     Dates: start: 20100629, end: 20100715
  2. (ACTRAPID /00646001/) [Concomitant]
  3. LANTUS [Concomitant]
  4. (CLEXANE) [Concomitant]
  5. (ANTRA /00661203/) [Concomitant]
  6. NORVASC [Concomitant]
  7. (ENAPREN) [Concomitant]
  8. BISOPROLOL FUMARATE [Concomitant]

REACTIONS (4)
  - ALANINE AMINOTRANSFERASE INCREASED [None]
  - ASPARTATE AMINOTRANSFERASE INCREASED [None]
  - GAMMA-GLUTAMYLTRANSFERASE INCREASED [None]
  - PANCYTOPENIA [None]
